APPROVED DRUG PRODUCT: VERAPAMIL HYDROCHLORIDE
Active Ingredient: VERAPAMIL HYDROCHLORIDE
Strength: 2.5MG/ML
Dosage Form/Route: INJECTABLE;INJECTION
Application: A070348 | Product #001
Applicant: ABRAXIS PHARMACEUTICAL PRODUCTS
Approved: May 1, 1986 | RLD: No | RS: No | Type: DISCN